FAERS Safety Report 8508239-0 (Version None)
Quarter: 2012Q3

REPORT INFORMATION
  Report Type: 
  Country: None (occurrence: None)
  Receive Date: 20120713
  Receipt Date: 20120703
  Transmission Date: 20120928
  Serious: Yes (Hospitalization)
  Sender: FDA-Public Use
  Company Number: DE-BRISTOL-MYERS SQUIBB COMPANY-16586950

PATIENT
  Age: 76 Year
  Sex: Female
  Weight: 60 kg

DRUGS (7)
  1. ERBITUX [Suspect]
     Indication: COLORECTAL CANCER METASTATIC
     Dosage: 10NOV10-10NOV10,17NOV10-01DEC10;14D,15DEC10-29DEC10;14D;250MG/M2
     Route: 042
     Dates: start: 20101110, end: 20101229
  2. ANTIHISTAMINE DRUGS [Concomitant]
     Indication: PREMEDICATION
     Dosage: 10NOV10-10NOV10,17NOV10-17NOV10
     Dates: start: 20101110, end: 20101117
  3. LEUCOVORIN CALCIUM [Concomitant]
     Indication: CHEMOTHERAPY
     Dosage: 14.2857MG/M2;18OCT10-15DEC10;58D,15DEC10-29DEC10;14D;32.1429MG/M2;450MG/M2
     Route: 042
     Dates: start: 20101018, end: 20101229
  4. FLUOROURACIL [Concomitant]
     Indication: CHEMOTHERAPY
     Dosage: 18OCT10-15DEC10;58D,750MG/M2;15DEC10-29DEC10;14D
     Route: 042
     Dates: start: 20101018, end: 20101229
  5. CORTICOSTEROID [Concomitant]
     Indication: PREMEDICATION
     Dosage: 10NOV10-10NOV10,17NOV10-17NOV10
     Route: 042
     Dates: start: 20101110, end: 20101117
  6. OXALIPLATIN [Concomitant]
     Indication: CHEMOTHERAPY
     Dosage: 6.0714MG/M2;18OCT10-15DEC10;58D,15DEC10-29DEC10;14D;4.5714MG/M2;64MG/M2
     Route: 042
     Dates: start: 20101018, end: 20101229
  7. ACETAMINOPHEN [Concomitant]
     Indication: PREMEDICATION
     Dosage: 10NOV10-10NOV10,17NOV10-17NOV10
     Dates: start: 20101110, end: 20101117

REACTIONS (1)
  - ILEAL STENOSIS [None]
